FAERS Safety Report 21131036 (Version 1)
Quarter: 2022Q3

REPORT INFORMATION
  Report Type: Report from Study
  Country: BR (occurrence: BR)
  Receive Date: 20220726
  Receipt Date: 20220726
  Transmission Date: 20221026
  Serious: Yes (Other)
  Sender: FDA-Public Use
  Company Number: BR-ABBVIE-22K-020-4478275-00

PATIENT
  Age: 61 Year
  Sex: Female
  Weight: 56 kg

DRUGS (2)
  1. RINVOQ [Suspect]
     Active Substance: UPADACITINIB
     Indication: Rheumatoid arthritis
     Route: 048
     Dates: start: 20211111, end: 2022
  2. RINVOQ [Suspect]
     Active Substance: UPADACITINIB
     Route: 048
     Dates: start: 2022

REACTIONS (9)
  - Osteoarthritis [Unknown]
  - Erythema [Recovering/Resolving]
  - Constipation [Recovering/Resolving]
  - Rhinalgia [Not Recovered/Not Resolved]
  - Nasal pruritus [Unknown]
  - Nasal dryness [Not Recovered/Not Resolved]
  - Abdominal rigidity [Recovering/Resolving]
  - Rhinitis [Recovered/Resolved]
  - Pyrexia [Recovered/Resolved]

NARRATIVE: CASE EVENT DATE: 20220601
